FAERS Safety Report 5014178-2 (Version None)
Quarter: 2006Q2

REPORT INFORMATION
  Report Type: 
  Country: None (occurrence: None)
  Receive Date: 20060414
  Receipt Date: 20060214
  Transmission Date: 20061013
  Serious: No
  Sender: FDA-Public Use
  Company Number: 2006SP000777

PATIENT
  Age: 70 Year
  Sex: Male
  Weight: 70.7611 kg

DRUGS (3)
  1. LUNESTA [Suspect]
     Indication: SLEEP DISORDER
     Dosage: 1 MG
     Dates: start: 20051215
  2. DIOVAN [Concomitant]
  3. VITAMIN E [Concomitant]

REACTIONS (1)
  - MIDDLE INSOMNIA [None]
